FAERS Safety Report 9056242 (Version 1)
Quarter: 2013Q1

REPORT INFORMATION
  Report Type: Spontaneous
  Country: US (occurrence: US)
  Receive Date: 20130205
  Receipt Date: 20130205
  Transmission Date: 20140127
  Serious: Yes (Hospitalization)
  Sender: FDA-Public Use
  Company Number: US-BAYER-2013-013564

PATIENT
  Age: 30 Year
  Sex: Female
  Weight: 93.2 kg

DRUGS (31)
  1. YAZ [Suspect]
     Dosage: UNK
     Dates: start: 200703, end: 200706
  2. APRI [Concomitant]
     Dosage: UNK
     Dates: start: 20070619, end: 20071008
  3. AMOXICILLIN [Concomitant]
     Dosage: 500 MG, UNK
     Route: 048
  4. EXTRA STRENGTH TYLENOL [Concomitant]
     Dosage: UNK
     Route: 048
     Dates: start: 20071006
  5. SUDAFED [Concomitant]
     Dosage: UNK
     Route: 048
     Dates: start: 20071006
  6. MUCINEX [Concomitant]
     Dosage: UNK
     Route: 048
     Dates: start: 20071007
  7. PROMETHAZINE [Concomitant]
     Indication: VOMITING
     Dosage: 25 MG, QID AS NEEDED
     Route: 048
  8. PROMETHAZINE [Concomitant]
     Indication: NAUSEA
  9. ACETAMINOPHEN W/CODEINE [Concomitant]
     Indication: PAIN
     Dosage: 300 - 30 MG EVERY 4 TO 6 HOURS AS NEEDED
     Route: 048
  10. ZOFRAN [Concomitant]
     Dosage: 4 MG, UNK
     Dates: start: 20071008
  11. TORADOL [Concomitant]
     Dosage: 60 MG, UNK
     Dates: start: 20071008
  12. AVELOX [Concomitant]
     Dosage: 400 MG, QDFOR 10 DAYS
     Route: 048
  13. ONDANSETRON [Concomitant]
     Indication: NAUSEA
     Dosage: 4 MG, QID
     Route: 048
  14. IMITREX [Concomitant]
     Dosage: UNK
     Dates: start: 20071010
  15. MORPHINE [Concomitant]
     Dosage: UNK
     Dates: start: 20071010
  16. HYDROCODONE W/ACETAMINOPHEN [Concomitant]
     Indication: PAIN
     Dosage: 5-500 MG ONE HALF TO ONE TABLE EVERY 4 TO 6 HOURS
     Route: 048
  17. STEROID [Concomitant]
     Dosage: UNK
     Dates: start: 20071015
  18. METHYLPREDNISOLONE [METHYLPREDNISOLONE] [Concomitant]
  19. TOPAMAX [Concomitant]
     Dosage: 25 MG, UNK
     Route: 048
  20. COMPAZINE [Concomitant]
     Dosage: 10 MG, UNK
     Dates: start: 20071018
  21. DHE [DIHYDROERGOTAMINE MESILATE] [Concomitant]
     Dosage: UNK
     Dates: start: 20071018
  22. FROVA [Concomitant]
     Indication: MIGRAINE
     Dosage: 2.5 MG, UNK
     Route: 048
     Dates: start: 20071022
  23. DIAMOX [Concomitant]
     Dosage: 500 MG, UNK
     Route: 048
     Dates: start: 20071023
  24. ALEVE [Concomitant]
     Dosage: UNK
     Route: 048
     Dates: start: 20071024
  25. PHENERGAN [Concomitant]
  26. TYLENOL WITH CODEINE [Concomitant]
  27. VICODIN [Concomitant]
  28. PREDNISONE [Concomitant]
  29. CELEBREX [Concomitant]
  30. NASAL PREPARATIONS [Concomitant]
  31. AMBIEN [Concomitant]

REACTIONS (4)
  - Superior sagittal sinus thrombosis [Recovered/Resolved]
  - Transverse sinus thrombosis [Recovered/Resolved]
  - Cerebral venous thrombosis [Recovered/Resolved]
  - Thalamic infarction [None]
